FAERS Safety Report 5828615-4 (Version None)
Quarter: 2008Q3

REPORT INFORMATION
  Report Type: 
  Country: None (occurrence: None)
  Receive Date: 20080731
  Receipt Date: 20080725
  Transmission Date: 20090109
  Serious: Yes (Other)
  Sender: FDA-Public Use
  Company Number: A0737528A

PATIENT
  Age: 32 Year
  Sex: Female

DRUGS (2)
  1. PAXIL [Suspect]
     Indication: ANXIETY
     Route: 048
  2. PAXIL CR [Suspect]
     Indication: ANXIETY
     Route: 048

REACTIONS (13)
  - FAECAL INCONTINENCE [None]
  - HALLUCINATION [None]
  - INFLUENZA [None]
  - MALAISE [None]
  - MULTIPLE SCLEROSIS [None]
  - NERVE INJURY [None]
  - NERVOUS SYSTEM DISORDER [None]
  - NEURALGIA [None]
  - PARALYSIS [None]
  - SUICIDAL IDEATION [None]
  - TREMOR [None]
  - TRIGEMINAL NEURALGIA [None]
  - VOMITING [None]
